FAERS Safety Report 6997984-4 (Version None)
Quarter: 2010Q3

REPORT INFORMATION
  Report Type: 
  Country: None (occurrence: None)
  Receive Date: 20100920
  Receipt Date: 20071011
  Transmission Date: 20110219
  Serious: Yes (Other)
  Sender: FDA-Public Use
  Company Number: US-ASTRAZENECA-2006UW27710

PATIENT
  Age: 39 Year
  Sex: Female
  Weight: 61.2 kg

DRUGS (17)
  1. SEROQUEL [Suspect]
     Indication: BIPOLAR DISORDER
     Route: 048
     Dates: start: 19990101, end: 20030101
  2. SEROQUEL [Suspect]
     Indication: SCHIZOPHRENIA
     Route: 048
     Dates: start: 19990101, end: 20030101
  3. SEROQUEL [Suspect]
     Indication: DEPRESSION
     Route: 048
     Dates: start: 19990101, end: 20030101
  4. SEROQUEL [Suspect]
     Indication: ANXIETY
     Route: 048
     Dates: start: 19990101, end: 20030101
  5. SEROQUEL [Suspect]
     Dosage: 200-800MG
     Route: 048
     Dates: start: 20020101, end: 20070101
  6. SEROQUEL [Suspect]
     Dosage: 200-800MG
     Route: 048
     Dates: start: 20020101, end: 20070101
  7. SEROQUEL [Suspect]
     Dosage: 200-800MG
     Route: 048
     Dates: start: 20020101, end: 20070101
  8. SEROQUEL [Suspect]
     Dosage: 200-800MG
     Route: 048
     Dates: start: 20020101, end: 20070101
  9. SEROQUEL [Suspect]
     Dosage: 100 TO 600 MG
     Route: 048
     Dates: start: 20020501
  10. SEROQUEL [Suspect]
     Dosage: 100 TO 600 MG
     Route: 048
     Dates: start: 20020501
  11. SEROQUEL [Suspect]
     Dosage: 100 TO 600 MG
     Route: 048
     Dates: start: 20020501
  12. SEROQUEL [Suspect]
     Dosage: 100 TO 600 MG
     Route: 048
     Dates: start: 20020501
  13. NEURONTIN [Concomitant]
     Dosage: 300 TO 600 MG
     Dates: start: 20020503
  14. KLONOPIN [Concomitant]
     Dates: start: 20020503
  15. VISTARIL [Concomitant]
     Dates: start: 20020517
  16. LOPRESSOR [Concomitant]
     Dates: start: 20011212
  17. PREMARIN [Concomitant]
     Dates: start: 20020207

REACTIONS (4)
  - DIABETES MELLITUS [None]
  - PANCREATITIS [None]
  - PANCREATITIS RELAPSING [None]
  - TYPE 2 DIABETES MELLITUS [None]
